FAERS Safety Report 25656956 (Version 1)
Quarter: 2025Q3

REPORT INFORMATION
  Report Type: Report from Study
  Country: CA (occurrence: CA)
  Receive Date: 20250807
  Receipt Date: 20250807
  Transmission Date: 20251021
  Serious: Yes (Hospitalization)
  Sender: ABBVIE
  Company Number: CA-ABBVIE-6404524

PATIENT
  Age: 93 Year
  Sex: Male

DRUGS (5)
  1. LUPRON [Suspect]
     Active Substance: LEUPROLIDE ACETATE
     Indication: Prostate cancer
     Dosage: PRE-FILLED SYRINGE
     Route: 065
     Dates: start: 20170912
  2. BICALUTAMIDE [Concomitant]
     Active Substance: BICALUTAMIDE
     Indication: Product used for unknown indication
  3. RAMIPRIL [Concomitant]
     Active Substance: RAMIPRIL
     Indication: Product used for unknown indication
  4. ROSUVASTATIN [Concomitant]
     Active Substance: ROSUVASTATIN
     Indication: Product used for unknown indication
  5. EYLEA [Concomitant]
     Active Substance: AFLIBERCEPT
     Indication: Product used for unknown indication

REACTIONS (2)
  - Fall [Recovered/Resolved]
  - Loss of personal independence in daily activities [Unknown]

NARRATIVE: CASE EVENT DATE: 20250101
